FAERS Safety Report 11048611 (Version 2)
Quarter: 2015Q2

REPORT INFORMATION
  Report Type: Spontaneous
  Country: FR (occurrence: FR)
  Receive Date: 20150420
  Receipt Date: 20150422
  Transmission Date: 20150821
  Serious: Yes (Hospitalization, Other)
  Sender: FDA-Public Use
  Company Number: FR-GLAXOSMITHKLINE-FR2015GSK052851

PATIENT
  Age: 26 Year
  Sex: Male

DRUGS (3)
  1. PROPOFOL. [Suspect]
     Active Substance: PROPOFOL
  2. LAMOTRIGINE. [Suspect]
     Active Substance: LAMOTRIGINE
     Indication: PRODUCT USED FOR UNKNOWN INDICATION
     Dosage: 8 G, UNK
  3. LACOSAMIDE [Suspect]
     Active Substance: LACOSAMIDE
     Indication: PRODUCT USED FOR UNKNOWN INDICATION
     Dosage: 6 G, UNK

REACTIONS (6)
  - Generalised tonic-clonic seizure [Unknown]
  - Status epilepticus [Unknown]
  - Blood creatine phosphokinase increased [Unknown]
  - Overdose [Unknown]
  - Coma [Unknown]
  - Agitation [Unknown]
